FAERS Safety Report 5341316-4 (Version None)
Quarter: 2007Q2

REPORT INFORMATION
  Report Type: 
  Country: None (occurrence: None)
  Receive Date: 20070521
  Receipt Date: 20070501
  Transmission Date: 20071010
  Serious: Yes (Other)
  Sender: FDA-Public Use
  Company Number: AEUSA200700102

PATIENT
  Sex: Male

DRUGS (1)
  1. IMMUNE GLOBULIN INTRAVENOUS (HUMAN) [Suspect]
     Dosage: 40 GM; IV
     Route: 042
     Dates: start: 20070428, end: 20070501

REACTIONS (1)
  - HYPERTENSION [None]
